FAERS Safety Report 9565570 (Version 1)
Quarter: 2013Q3

REPORT INFORMATION
  Report Type: Report from Study
  Country: CA (occurrence: CA)
  Receive Date: 20130930
  Receipt Date: 20130930
  Transmission Date: 20140515
  Serious: Yes (Hospitalization)
  Sender: FDA-Public Use
  Company Number: CA-JNJFOC-20130914813

PATIENT
  Age: 16 Year
  Sex: Female
  Weight: 90 kg

DRUGS (2)
  1. REMICADE [Suspect]
     Indication: CROHN^S DISEASE
     Route: 042
     Dates: start: 201010
  2. FRISIUM [Concomitant]
     Indication: CONVULSION
     Route: 065
     Dates: end: 2013

REACTIONS (1)
  - Muscular weakness [Unknown]
